FAERS Safety Report 5785328-5 (Version None)
Quarter: 2008Q2

REPORT INFORMATION
  Report Type: 
  Country: None (occurrence: None)
  Receive Date: 20080620
  Receipt Date: 20080620
  Transmission Date: 20081010
  Serious: Yes (Other)
  Sender: FDA-Public Use
  Company Number: None

PATIENT
  Age: 62 Year
  Sex: Female
  Weight: 51.7101 kg

DRUGS (2)
  1. NASOCORT AQ NASAL SPRAY  16.5 GM  SANOFI-AVENTIS [Suspect]
     Indication: INFLAMMATION
     Dosage: 1 SPRAY EACH NOSTRIL DAILY  NASAL
     Route: 045
     Dates: start: 20070127, end: 20070720
  2. RHINOCORT AQUA NASAL SPRAY  32 MCG  ASTRAZENECA [Suspect]
     Indication: INFLAMMATION
     Dosage: 2 SPRAYS IN EACH NOSTRIL TWO TIMES PER DAY NASAL
     Route: 045
     Dates: start: 20071024, end: 20071124

REACTIONS (2)
  - CATARACT [None]
  - NASAL CONGESTION [None]
